FAERS Safety Report 14544052 (Version 2)
Quarter: 2018Q3

REPORT INFORMATION
  Report Type: Spontaneous
  Country: FR (occurrence: FR)
  Receive Date: 20180216
  Receipt Date: 20180713
  Transmission Date: 20181010
  Serious: Yes (Hospitalization)
  Sender: FDA-Public Use
  Company Number: FR-PFIZER INC-2018062657

PATIENT
  Sex: Female
  Weight: 65 kg

DRUGS (7)
  1. IRINOTECAN HOSPIRA [Concomitant]
     Active Substance: IRINOTECAN
     Indication: COLON CANCER METASTATIC
     Dosage: UNK
     Route: 042
     Dates: start: 20160706, end: 20171206
  2. FLUOROURACILE ACCORD [Concomitant]
     Active Substance: FLUOROURACIL
     Dosage: UNK
     Route: 042
     Dates: start: 20160706, end: 20171206
  3. AVASTIN [Concomitant]
     Active Substance: BEVACIZUMAB
     Indication: COLON CANCER METASTATIC
     Dosage: UNK
     Route: 042
     Dates: start: 20160706, end: 20160920
  4. FLUOROURACILE ACCORD [Concomitant]
     Active Substance: FLUOROURACIL
     Indication: COLON CANCER METASTATIC
     Dosage: UNK
     Route: 042
     Dates: start: 20160706, end: 20160920
  5. AVASTIN [Concomitant]
     Active Substance: BEVACIZUMAB
     Dosage: UNK
     Route: 042
     Dates: start: 20160706, end: 20171206
  6. OXALIPLATIN. [Suspect]
     Active Substance: OXALIPLATIN
     Indication: COLON CANCER METASTATIC
     Dosage: UNK
     Route: 042
     Dates: start: 20160706, end: 20160920
  7. IRINOTECAN HOSPIRA [Concomitant]
     Active Substance: IRINOTECAN
     Dosage: UNK
     Route: 042
     Dates: start: 20160706, end: 20160920

REACTIONS (5)
  - Anaemia [Recovered/Resolved]
  - Neuropathy peripheral [Recovered/Resolved with Sequelae]
  - Melaena [Recovered/Resolved]
  - Venoocclusive liver disease [Recovered/Resolved with Sequelae]
  - Portal hypertension [Recovered/Resolved with Sequelae]

NARRATIVE: CASE EVENT DATE: 201609
